FAERS Safety Report 16850765 (Version 1)
Quarter: 2019Q3

REPORT INFORMATION
  Report Type: Spontaneous
  Country: US (occurrence: US)
  Receive Date: 20190925
  Receipt Date: 20190925
  Transmission Date: 20191005
  Serious: No
  Sender: FDA-Public Use
  Company Number: US-THERAPEUTICSMD-2019TMD02052

PATIENT
  Age: 43 Year
  Sex: Female
  Weight: 60.77 kg

DRUGS (3)
  1. IMVEXXY [Suspect]
     Active Substance: ESTRADIOL
     Indication: ATROPHIC VULVOVAGINITIS
     Dosage: 10 ?G, 1X/DAY
     Route: 067
     Dates: start: 20190625, end: 20190705
  2. DIVIGEL [Concomitant]
     Active Substance: ESTRADIOL
     Dosage: 1 MG, 1X/DAY BEFORE BEDTIME
     Dates: start: 20190618
  3. SYNTHROID [Concomitant]
     Active Substance: LEVOTHYROXINE SODIUM
     Dosage: 88 ?G, 1X/DAY

REACTIONS (4)
  - Vaginal discharge [Recovered/Resolved]
  - Vulvovaginal pain [Recovered/Resolved]
  - Abdominal pain [Recovered/Resolved]
  - Vaginal odour [Recovered/Resolved]

NARRATIVE: CASE EVENT DATE: 2019
